FAERS Safety Report 7513537-3 (Version None)
Quarter: 2011Q2

REPORT INFORMATION
  Report Type: 
  Country: None (occurrence: None)
  Receive Date: 20110531
  Receipt Date: 20110525
  Transmission Date: 20111010
  Serious: Yes (Death, Life-Threatening, Hospitalization)
  Sender: FDA-Public Use
  Company Number: FR-ROCHE-776681

PATIENT
  Sex: Female

DRUGS (3)
  1. PACLITAXEL [Suspect]
     Dosage: LAST DOSE PRIOR TO SAE 27 APRIL 2011
     Route: 065
     Dates: start: 20110420, end: 20110427
  2. CAPECITABINE [Suspect]
     Dosage: LAST DOSE PRIOR TO SAE 29 APRIL 2011
     Route: 065
     Dates: start: 20110420, end: 20110504
  3. BEVACIZUMAB [Suspect]
     Dosage: LAST DOSE PRIOR TO SAE 20 APRIL 2011
     Route: 065
     Dates: start: 20110420, end: 20110420

REACTIONS (1)
  - MULTI-ORGAN FAILURE [None]
